FAERS Safety Report 6933953-8 (Version None)
Quarter: 2010Q3

REPORT INFORMATION
  Report Type: 
  Country: None (occurrence: None)
  Receive Date: 20100820
  Receipt Date: 20100813
  Transmission Date: 20110219
  Serious: Yes (Hospitalization)
  Sender: FDA-Public Use
  Company Number: US-SANOFI-AVENTIS-2010SA048677

PATIENT
  Age: 55 Year
  Sex: Male

DRUGS (1)
  1. MULTAQ [Suspect]
     Route: 048

REACTIONS (1)
  - CEREBROVASCULAR ACCIDENT [None]
